FAERS Safety Report 20989712 (Version 1)
Quarter: 2022Q2

REPORT INFORMATION
  Report Type: Spontaneous
  Country: US (occurrence: US)
  Receive Date: 20220621
  Receipt Date: 20220621
  Transmission Date: 20220720
  Serious: Yes (Other)
  Sender: FDA-Public Use
  Company Number: US-PURDUE-USA-2021-0285553

PATIENT
  Sex: Male
  Weight: 83.9 kg

DRUGS (1)
  1. OXYCONTIN [Suspect]
     Active Substance: OXYCODONE HYDROCHLORIDE
     Indication: Pain management
     Dosage: 30 MG, EVERY MORNING AND NIGHT
     Route: 048

REACTIONS (1)
  - Drug dependence [Recovered/Resolved]
